FAERS Safety Report 9162875 (Version 2)
Quarter: 2013Q1

REPORT INFORMATION
  Report Type: Spontaneous
  Country: JP (occurrence: None)
  Receive Date: 20130325
  Receipt Date: 20130325
  Transmission Date: 20140127
  Serious: Yes (Other)
  Sender: FDA-Public Use
  Company Number: 2013034733

PATIENT
  Age: 70 Year
  Sex: Male

DRUGS (8)
  1. ALBUMINAR [Suspect]
     Indication: HYPOALBUMINAEMIA
     Dosage: 12.5G / 250 ML, 2 VIALS, 50 ML Q!H INTRAVENOUS
     Route: 042
     Dates: start: 20121213, end: 20121218
  2. ALBUMINAR [Suspect]
     Indication: PLEURAL EFFUSION
     Dosage: 12.5G / 250 ML, 2 VIALS, 50 ML Q!H INTRAVENOUS
     Route: 042
     Dates: start: 20121213, end: 20121218
  3. PROSTAGLANDINIS (PROSTAGLANDINS) [Concomitant]
  4. HEPARIN  (HEPARIN) [Concomitant]
  5. SOLUTIONS FOR PARENTERAL NUTRITION  (SOLUTIONS FOR PARENTERAL NUTRITION) [Concomitant]
  6. MEROPEN [Concomitant]
  7. PROTON PUMP INHIBITOR  (PROTON PUMP INHIBITORS) [Concomitant]
  8. HERBAL PREPARATION  (HERBAL  PREPARATION) [Concomitant]

REACTIONS (1)
  - Blood pressure increased [None]
